FAERS Safety Report 17597716 (Version 7)
Quarter: 2020Q2

REPORT INFORMATION
  Report Type: Report from Study
  Country: AR (occurrence: AR)
  Receive Date: 20200330
  Receipt Date: 20200516
  Transmission Date: 20200713
  Serious: Yes (Other)
  Sender: FDA-Public Use
  Company Number: NVSC2020AR019660

PATIENT
  Age: 37 Year
  Sex: Female

DRUGS (2)
  1. COSENTYX [Suspect]
     Active Substance: SECUKINUMAB
     Indication: PSORIASIS
     Dosage: 300 MG, UNKNOWN
     Route: 065
     Dates: start: 20191009
  2. COSENTYX [Suspect]
     Active Substance: SECUKINUMAB
     Dosage: 300 MG, QMO
     Route: 065

REACTIONS (14)
  - Mean cell haemoglobin [Unknown]
  - Inappropriate schedule of product administration [Unknown]
  - Bacterial disease carrier [Recovering/Resolving]
  - Angioedema [Recovered/Resolved]
  - Angioedema [Unknown]
  - Concomitant disease aggravated [Unknown]
  - Dyspnoea [Recovering/Resolving]
  - Ear infection [Recovering/Resolving]
  - Hypersensitivity [Recovered/Resolved]
  - Tonsillitis [Recovering/Resolving]
  - Total cholesterol/HDL ratio increased [Unknown]
  - Application site reaction [Unknown]
  - Pruritus [Recovering/Resolving]
  - Blood alkaline phosphatase increased [Unknown]

NARRATIVE: CASE EVENT DATE: 20191230
